FAERS Safety Report 21386540 (Version 1)
Quarter: 2022Q3

REPORT INFORMATION
  Report Type: Spontaneous
  Country: CN (occurrence: CN)
  Receive Date: 20220928
  Receipt Date: 20220928
  Transmission Date: 20221027
  Serious: Yes (Other)
  Sender: FDA-Public Use
  Company Number: CN-ELI_LILLY_AND_COMPANY-CN202209008150

PATIENT
  Age: 51 Year
  Sex: Male
  Weight: 71 kg

DRUGS (1)
  1. ABEMACICLIB [Suspect]
     Active Substance: ABEMACICLIB
     Indication: Breast cancer
     Dosage: 150 MG, BID
     Route: 048
     Dates: start: 20220802, end: 20220902

REACTIONS (2)
  - Anaemia [Recovering/Resolving]
  - Platelet count decreased [Recovering/Resolving]

NARRATIVE: CASE EVENT DATE: 20220902
